FAERS Safety Report 23999945 (Version 3)
Quarter: 2024Q3

REPORT INFORMATION
  Report Type: Spontaneous
  Country: GB (occurrence: GB)
  Receive Date: 20240621
  Receipt Date: 20240717
  Transmission Date: 20241016
  Serious: Yes (Hospitalization, Other)
  Sender: MYLAN
  Company Number: GB-MYLANLABS-2024M1052232

PATIENT
  Sex: Female

DRUGS (5)
  1. CLOZARIL [Suspect]
     Active Substance: CLOZAPINE
     Indication: Schizophrenia
     Dosage: 100 MILLIGRAM, BID
     Route: 048
     Dates: start: 20040714
  2. CLOZARIL [Suspect]
     Active Substance: CLOZAPINE
     Dosage: 150 MILLIGRAM, QD (50 MG IN MORNING AND 100 MG AT NIGHT)
     Route: 048
  3. CLOZARIL [Suspect]
     Active Substance: CLOZAPINE
     Dosage: UNK
     Route: 048
  4. ARIPIPRAZOLE [Concomitant]
     Active Substance: ARIPIPRAZOLE
     Indication: Adjuvant therapy
     Dosage: 10 MILLIGRAM, QD
     Route: 048
  5. MIRTAZAPINE [Concomitant]
     Active Substance: MIRTAZAPINE
     Indication: Depressive symptom
     Dosage: 30 MILLIGRAM, QD
     Route: 048

REACTIONS (7)
  - Mental impairment [Unknown]
  - Lung neoplasm malignant [Unknown]
  - General physical health deterioration [Unknown]
  - Delirium [Unknown]
  - Unresponsive to stimuli [Unknown]
  - Blood sodium decreased [Unknown]
  - Somnolence [Unknown]
